FAERS Safety Report 16804220 (Version 1)
Quarter: 2019Q3

REPORT INFORMATION
  Report Type: Spontaneous
  Country: US (occurrence: US)
  Receive Date: 20190723
  Receipt Date: 20190723
  Transmission Date: 20191005
  Serious: Yes (Life-Threatening)
  Sender: FDA-Public Use
  Company Number: None

PATIENT
  Age: 42 Year
  Sex: Male
  Weight: 91.17 kg

DRUGS (1)
  1. PREGABALIN. [Suspect]
     Active Substance: PREGABALIN
     Indication: PAIN
     Dosage: ?          OTHER FREQUENCY:OTHER;?
     Route: 048
     Dates: start: 20190522, end: 20190715

REACTIONS (5)
  - Drug ineffective [None]
  - Condition aggravated [None]
  - Pain [None]
  - Suicidal ideation [None]
  - Paradoxical drug reaction [None]

NARRATIVE: CASE EVENT DATE: 20190612
